FAERS Safety Report 9720548 (Version 1)
Quarter: 2013Q4

REPORT INFORMATION
  Report Type: Spontaneous
  Country: FR (occurrence: FR)
  Receive Date: 20131129
  Receipt Date: 20131129
  Transmission Date: 20140711
  Serious: Yes (Death)
  Sender: FDA-Public Use
  Company Number: FR-SA-2013SA123022

PATIENT
  Age: 13 Month
  Sex: Female
  Weight: 9.6 kg

DRUGS (7)
  1. MYOZYME [Suspect]
     Indication: GLYCOGEN STORAGE DISEASE TYPE II
     Route: 042
     Dates: start: 201210, end: 20131010
  2. SOLUPRED [Concomitant]
     Indication: PREMEDICATION
     Route: 048
  3. AERIUS [Concomitant]
     Indication: PREMEDICATION
     Dosage: THE EVENING BEFORE INFUSION
     Route: 048
  4. POLARAMINE [Concomitant]
     Indication: PREMEDICATION
     Dosage: 1 VIAL
     Route: 042
  5. SOLUMEDROL [Concomitant]
     Dosage: 1 HOUR BEFORE INFUSION WITH 1 VIAL OF POLARIMINE
     Route: 042
  6. PULMICORT [Concomitant]
     Dosage: IMMEDIATELY BEFORE INFUSION.AEROSOL.
     Route: 055
  7. PROPANOLOL [Concomitant]
     Dates: start: 20121001, end: 20121115

REACTIONS (2)
  - Cardio-respiratory arrest [Fatal]
  - Nervous system disorder [Fatal]
